FAERS Safety Report 14112887 (Version 1)
Quarter: 2017Q4

REPORT INFORMATION
  Report Type: Spontaneous
  Country: FR (occurrence: FR)
  Receive Date: 20171022
  Receipt Date: 20171022
  Transmission Date: 20180321
  Serious: Yes (Other)
  Sender: FDA-Public Use
  Company Number: FR-MERCK KGAA-2031107

PATIENT
  Age: 78 Year
  Sex: Female

DRUGS (1)
  1. NOVOTHYROX [Suspect]
     Active Substance: LEVOTHYROXINE SODIUM
     Indication: PRODUCT USED FOR UNKNOWN INDICATION

REACTIONS (7)
  - Pruritus [Unknown]
  - Suicidal ideation [Not Recovered/Not Resolved]
  - Muscle spasms [Unknown]
  - Eye disorder [Unknown]
  - Nausea [Unknown]
  - Arrhythmia [Unknown]
  - Negative thoughts [Unknown]

NARRATIVE: CASE EVENT DATE: 201706
